FAERS Safety Report 10908181 (Version 1)
Quarter: 2015Q1

REPORT INFORMATION
  Report Type: Spontaneous
  Country: US (occurrence: US)
  Receive Date: 20150312
  Receipt Date: 20150312
  Transmission Date: 20150721
  Serious: No
  Sender: FDA-Public Use
  Company Number: US-INCYTE CORPORATION-2015IN000324

PATIENT
  Age: 73 Year
  Sex: Female
  Weight: 63.95 kg

DRUGS (21)
  1. FISH OIL [Concomitant]
     Active Substance: FISH OIL
  2. MIRALAX [Concomitant]
     Active Substance: POLYETHYLENE GLYCOL 3350
  3. LIDODERM [Concomitant]
     Active Substance: LIDOCAINE
  4. JAKAFI [Suspect]
     Active Substance: RUXOLITINIB
     Indication: MYELOFIBROSIS
     Dosage: 10 MG, BID
     Route: 048
     Dates: start: 20150102
  5. ATROVENT [Concomitant]
     Active Substance: IPRATROPIUM BROMIDE
  6. DEPAKOTE [Concomitant]
     Active Substance: DIVALPROEX SODIUM
  7. VITAMIN B [Concomitant]
     Active Substance: VITAMIN B
  8. SODIUM BICARBONATE. [Concomitant]
     Active Substance: SODIUM BICARBONATE
  9. RECLAST [Concomitant]
     Active Substance: ZOLEDRONIC ACID
  10. ZOLPIDEM [Concomitant]
     Active Substance: ZOLPIDEM\ZOLPIDEM TARTRATE
  11. FLOVENT [Concomitant]
     Active Substance: FLUTICASONE PROPIONATE
  12. ALBUTEROL                          /00139501/ [Concomitant]
     Active Substance: ALBUTEROL
  13. ASPIRIN. [Concomitant]
     Active Substance: ASPIRIN
  14. TYLENOL [Concomitant]
     Active Substance: ACETAMINOPHEN
  15. WARFARIN [Concomitant]
     Active Substance: WARFARIN
  16. HYDROXYUREA. [Concomitant]
     Active Substance: HYDROXYUREA
  17. CALCIUM [Concomitant]
     Active Substance: CALCIUM
  18. TYLENOL WITH CODEINE [Concomitant]
     Active Substance: ACETAMINOPHEN\CODEINE PHOSPHATE
  19. ZOCOR [Concomitant]
     Active Substance: SIMVASTATIN
  20. RESTASIS [Concomitant]
     Active Substance: CYCLOSPORINE
  21. OMEPRAZOLE. [Concomitant]
     Active Substance: OMEPRAZOLE

REACTIONS (5)
  - Laboratory test abnormal [Unknown]
  - Alopecia [Unknown]
  - Constipation [Unknown]
  - Back pain [Unknown]
  - International normalised ratio decreased [Unknown]

NARRATIVE: CASE EVENT DATE: 20141228
